FAERS Safety Report 9687712 (Version 1)
Quarter: 2013Q4

REPORT INFORMATION
  Report Type: Spontaneous
  Country: US (occurrence: US)
  Receive Date: 20131114
  Receipt Date: 20131114
  Transmission Date: 20140711
  Serious: No
  Sender: FDA-Public Use
  Company Number: US-PFIZER INC-2013325316

PATIENT
  Age: 64 Year
  Sex: Female
  Weight: 68.03 kg

DRUGS (2)
  1. PRISTIQ [Suspect]
     Indication: ANXIETY
     Dosage: 100 MG, DAILY
     Dates: end: 20131109
  2. PRISTIQ [Suspect]
     Indication: DEPRESSION

REACTIONS (2)
  - Hepatic enzyme increased [Unknown]
  - Emotional disorder [Unknown]
